FAERS Safety Report 4547264-1 (Version None)
Quarter: 2005Q1

REPORT INFORMATION
  Report Type: 
  Country: None (occurrence: None)
  Receive Date: 20050105
  Receipt Date: 20041216
  Transmission Date: 20050727
  Serious: Yes (Hospitalization)
  Sender: FDA-Public Use
  Company Number: USA041286482

PATIENT
  Age: 18 Year
  Sex: Male

DRUGS (4)
  1. CYMBALTA [Suspect]
     Indication: MAJOR DEPRESSION
     Dosage: 40 MG
  2. REMERON (MIRTAZAPINE ORIFARM) [Concomitant]
  3. LITHIUM [Concomitant]
  4. GABITRIL (TIAGABINE HYDROCHLORIDE0 [Concomitant]

REACTIONS (3)
  - ARRHYTHMIA [None]
  - ATRIOVENTRICULAR BLOCK SECOND DEGREE [None]
  - TACHYCARDIA [None]
